FAERS Safety Report 19276876 (Version 1)
Quarter: 2021Q2

REPORT INFORMATION
  Report Type: Spontaneous
  Country: CN (occurrence: CN)
  Receive Date: 20210520
  Receipt Date: 20210520
  Transmission Date: 20210717
  Serious: Yes (Other)
  Sender: FDA-Public Use
  Company Number: CN-ROCHE-2827125

PATIENT
  Age: 66 Year
  Sex: Male

DRUGS (5)
  1. AVASTIN [Suspect]
     Active Substance: BEVACIZUMAB
     Route: 041
  2. ICOTINIB HYDROCHLORIDE [Concomitant]
     Active Substance: ICOTINIB HYDROCHLORIDE
     Indication: LUNG ADENOCARCINOMA
     Dosage: TARGETED DRUG THERAPY
     Route: 048
     Dates: start: 20210302
  3. AVASTIN [Suspect]
     Active Substance: BEVACIZUMAB
     Route: 041
     Dates: start: 20210228
  4. AVASTIN [Suspect]
     Active Substance: BEVACIZUMAB
     Dosage: THE SECOND CYCLE
     Route: 041
     Dates: start: 20210322
  5. AVASTIN [Suspect]
     Active Substance: BEVACIZUMAB
     Indication: LUNG ADENOCARCINOMA
     Route: 034
     Dates: start: 20210228

REACTIONS (2)
  - Off label use [Unknown]
  - Pneumothorax [Unknown]
